FAERS Safety Report 9396604 (Version 1)
Quarter: 2013Q3

REPORT INFORMATION
  Report Type: Spontaneous
  Country: GB (occurrence: GB)
  Receive Date: 20130711
  Receipt Date: 20130711
  Transmission Date: 20140515
  Serious: Yes (Death)
  Sender: FDA-Public Use
  Company Number: GB-WATSON-2013-12228

PATIENT
  Age: 49 Year
  Sex: Male

DRUGS (1)
  1. METRONIDAZOLE (UNKNOWN) [Suspect]
     Indication: ORAL INFECTION
     Dosage: UNK, UNKNOWN
     Route: 048
     Dates: start: 20130520

REACTIONS (2)
  - Anaphylactic reaction [Fatal]
  - Cardiac arrest [Fatal]
